FAERS Safety Report 6843505-6 (Version None)
Quarter: 2010Q3

REPORT INFORMATION
  Report Type: 
  Country: None (occurrence: None)
  Receive Date: 20100715
  Receipt Date: 20100706
  Transmission Date: 20110219
  Serious: Yes (Disabling)
  Sender: FDA-Public Use
  Company Number: FR-BAYER-201029845GPV

PATIENT
  Age: 52 Year
  Sex: Female
  Weight: 71 kg

DRUGS (5)
  1. BETAFERON [Suspect]
     Indication: MULTIPLE SCLEROSIS
     Route: 058
     Dates: start: 20041101, end: 20100616
  2. URBANYL [Concomitant]
     Indication: ANXIETY
     Dosage: TOTAL DAILY DOSE: 1 DF
     Route: 048
     Dates: start: 19950101
  3. PAROXETINE [Concomitant]
     Indication: ANTIDEPRESSANT THERAPY
     Dosage: TOTAL DAILY DOSE: 1 DF
     Route: 048
     Dates: start: 20100401
  4. TAMOXIFEN [Concomitant]
     Indication: NEOPLASM MALIGNANT
     Dosage: TOTAL DAILY DOSE: 1 DF
     Route: 048
     Dates: start: 20050701
  5. ATENOLOL [Concomitant]
     Dosage: TOTAL DAILY DOSE: 1 DF
     Route: 048
     Dates: start: 20100401

REACTIONS (5)
  - CHILLS [None]
  - MOBILITY DECREASED [None]
  - MUSCULAR WEAKNESS [None]
  - PYREXIA [None]
  - TREMOR [None]
